FAERS Safety Report 12276550 (Version 1)
Quarter: 2016Q2

REPORT INFORMATION
  Report Type: Spontaneous
  Country: US (occurrence: US)
  Receive Date: 20160418
  Receipt Date: 20160418
  Transmission Date: 20160815
  Serious: No
  Sender: FDA-Public Use
  Company Number: US-TEVA-646402ACC

PATIENT
  Age: 48 Year
  Sex: Female
  Weight: 86.26 kg

DRUGS (3)
  1. ZYRTEC [Concomitant]
     Active Substance: CETIRIZINE HYDROCHLORIDE
  2. PLAN B ONE-STEP [Suspect]
     Active Substance: LEVONORGESTREL
     Indication: POST COITAL CONTRACEPTION
     Dates: start: 20160214, end: 20160214
  3. POTASSIUM [Concomitant]
     Active Substance: POTASSIUM
     Indication: BLOOD POTASSIUM DECREASED
     Dosage: 99 MG

REACTIONS (2)
  - Menstruation irregular [Recovered/Resolved]
  - Anovulatory cycle [Not Recovered/Not Resolved]

NARRATIVE: CASE EVENT DATE: 20160227
